FAERS Safety Report 4875066-5 (Version None)
Quarter: 2006Q1

REPORT INFORMATION
  Report Type: 
  Country: None (occurrence: None)
  Receive Date: 20060109
  Receipt Date: 20051229
  Transmission Date: 20060701
  Serious: Yes (Other)
  Sender: FDA-Public Use
  Company Number: FR-JNJFOC-20060100670

PATIENT
  Sex: Male

DRUGS (3)
  1. TOPALGIC [Suspect]
     Indication: BACK PAIN
     Route: 048
  2. DEPAKOTE [Concomitant]
     Indication: BIPOLAR DISORDER
     Route: 048
  3. ZYPREXA [Concomitant]
     Indication: BIPOLAR DISORDER
     Route: 065

REACTIONS (2)
  - AGITATION [None]
  - BIPOLAR I DISORDER [None]
